FAERS Safety Report 12897628 (Version 1)
Quarter: 2016Q4

REPORT INFORMATION
  Report Type: Spontaneous
  Country: US (occurrence: US)
  Receive Date: 20161031
  Receipt Date: 20161031
  Transmission Date: 20170207
  Serious: Yes (Hospitalization)
  Sender: FDA-Public Use
  Company Number: US-BAYER-2016-202185

PATIENT
  Age: 67 Year
  Sex: Female

DRUGS (6)
  1. SYNTHROID [Concomitant]
     Active Substance: LEVOTHYROXINE SODIUM
     Dosage: UNK
  2. BAYER LOW DOSE [Concomitant]
     Active Substance: ASPIRIN
     Indication: PAIN
     Dosage: 1 DF, UNK
  3. APIXABAN [Concomitant]
     Active Substance: APIXABAN
     Dosage: UNK
  4. ALEVE [Suspect]
     Active Substance: NAPROXEN SODIUM
     Indication: ARTHRALGIA
  5. QUINAPRIL. [Concomitant]
     Active Substance: QUINAPRIL
     Dosage: UNK
  6. ALEVE [Suspect]
     Active Substance: NAPROXEN SODIUM
     Indication: PAIN
     Dosage: 1 DF, QD
     Route: 048
     Dates: start: 2014, end: 20161004

REACTIONS (3)
  - Atrial flutter [Unknown]
  - Tachycardia [Unknown]
  - Product use issue [Unknown]

NARRATIVE: CASE EVENT DATE: 2014
